FAERS Safety Report 6071027-1 (Version None)
Quarter: 2009Q1

REPORT INFORMATION
  Report Type: 
  Country: None (occurrence: None)
  Receive Date: 20090209
  Receipt Date: 20090205
  Transmission Date: 20090719
  Serious: Yes (Other)
  Sender: FDA-Public Use
  Company Number: B0557673A

PATIENT
  Age: 11 Year
  Sex: Male

DRUGS (2)
  1. RELENZA [Suspect]
     Indication: INFLUENZA
     Route: 055
     Dates: start: 20090130, end: 20090130
  2. CALONAL [Concomitant]
     Route: 065

REACTIONS (2)
  - NIGHTMARE [None]
  - SLEEP PARALYSIS [None]
